FAERS Safety Report 9642531 (Version 1)
Quarter: 2013Q4

REPORT INFORMATION
  Report Type: Spontaneous
  Country: US (occurrence: US)
  Receive Date: 20131024
  Receipt Date: 20131024
  Transmission Date: 20140711
  Serious: Yes (Other)
  Sender: FDA-Public Use
  Company Number: US-MYLANLABS-2013S1023159

PATIENT
  Age: 54 Year
  Sex: Male

DRUGS (2)
  1. OMNIPAQUE [Suspect]
     Indication: COMPUTERISED TOMOGRAM
     Route: 065
  2. LITHIUM [Suspect]
     Route: 065

REACTIONS (1)
  - Thyrotoxic crisis [Recovering/Resolving]
